FAERS Safety Report 26190814 (Version 1)
Quarter: 2025Q4

REPORT INFORMATION
  Report Type: Report from Study
  Country: JP (occurrence: JP)
  Receive Date: 20251223
  Receipt Date: 20251223
  Transmission Date: 20260118
  Serious: Yes (Other)
  Sender: ROCHE
  Company Number: JP-ROCHE-10000461576

PATIENT

DRUGS (1)
  1. RITUXIMAB [Suspect]
     Active Substance: RITUXIMAB
     Indication: Systemic scleroderma
     Route: 042

REACTIONS (21)
  - COVID-19 [Unknown]
  - Pneumonia bacterial [Unknown]
  - Influenza [Unknown]
  - Diverticulitis [Unknown]
  - Urinary tract infection [Unknown]
  - Liver injury [Unknown]
  - Thrombocytopenia [Unknown]
  - Renal-limited thrombotic microangiopathy [Unknown]
  - Compression fracture [Unknown]
  - Ileus paralytic [Unknown]
  - Cat scratch disease [Unknown]
  - Upper respiratory tract inflammation [Unknown]
  - Cystitis [Unknown]
  - Gastroenteritis [Unknown]
  - Genital herpes [Unknown]
  - Device related infection [Unknown]
  - Infection [Unknown]
  - Cardiac failure acute [Unknown]
  - Agranulocytosis [Unknown]
  - Ileus [Unknown]
  - Electrolyte imbalance [Unknown]
